FAERS Safety Report 26182822 (Version 1)
Quarter: 2025Q4

REPORT INFORMATION
  Report Type: Report from Study
  Country: US (occurrence: US)
  Receive Date: 20251221
  Receipt Date: 20251221
  Transmission Date: 20260118
  Serious: Yes (Other)
  Sender: TEVA
  Company Number: US-TEVA-VS-3401365

PATIENT
  Age: 52 Year
  Sex: Female

DRUGS (6)
  1. AUSTEDO XR [Suspect]
     Active Substance: DEUTETRABENAZINE
     Indication: Tardive dyskinesia
     Dosage: EXTENDED RELEASE TABLET
     Route: 048
  2. AUSTEDO XR [Suspect]
     Active Substance: DEUTETRABENAZINE
     Indication: Tardive dyskinesia
     Dosage: EXTENDED RELEASE TABLET
     Route: 048
     Dates: start: 20250916
  3. AUSTEDO XR [Suspect]
     Active Substance: DEUTETRABENAZINE
     Indication: Tardive dyskinesia
     Dosage: EXTENDED RELEASE TABLET
     Route: 048
     Dates: start: 20250923
  4. AUSTEDO XR [Suspect]
     Active Substance: DEUTETRABENAZINE
     Indication: Tardive dyskinesia
     Dosage: EXTENDED RELEASE TABLET
     Route: 048
     Dates: start: 20250930
  5. AUSTEDO XR [Suspect]
     Active Substance: DEUTETRABENAZINE
     Indication: Tardive dyskinesia
     Dosage: EXTENDED RELEASE TABLET
     Route: 048
     Dates: start: 20251007
  6. AUSTEDO XR [Suspect]
     Active Substance: DEUTETRABENAZINE
     Indication: Tardive dyskinesia
     Dosage: EXTENDED RELEASE TABLET
     Route: 048

REACTIONS (7)
  - Hallucination, auditory [Unknown]
  - Somnolence [Unknown]
  - Fatigue [Unknown]
  - Social anxiety disorder [Unknown]
  - Aggression [Unknown]
  - Irritability [Unknown]
  - Agoraphobia [Unknown]
